FAERS Safety Report 21498153 (Version 2)
Quarter: 2022Q4

REPORT INFORMATION
  Report Type: Spontaneous
  Country: IT (occurrence: IT)
  Receive Date: 20221024
  Receipt Date: 20221024
  Transmission Date: 20230113
  Serious: Yes (Other)
  Sender: FDA-Public Use
  Company Number: IT-ORG100014127-2022001148

PATIENT
  Age: 53 Year
  Sex: Female

DRUGS (7)
  1. KETOCONAZOLE [Suspect]
     Active Substance: KETOCONAZOLE
     Indication: Cushing^s syndrome
     Dates: start: 2020, end: 202007
  2. KETOCONAZOLE [Suspect]
     Active Substance: KETOCONAZOLE
     Indication: Cushing^s syndrome
     Dates: start: 20210325, end: 20210401
  3. METYRAPONE [Suspect]
     Active Substance: METYRAPONE
     Indication: Cushing^s syndrome
     Dates: start: 202007, end: 20200807
  4. METYRAPONE [Suspect]
     Active Substance: METYRAPONE
     Indication: Cushing^s syndrome
     Dates: start: 20200807, end: 20210301
  5. METYRAPONE [Suspect]
     Active Substance: METYRAPONE
     Indication: Cushing^s syndrome
     Dates: start: 20210301, end: 20210325
  6. METYRAPONE [Suspect]
     Active Substance: METYRAPONE
     Indication: Cushing^s syndrome
     Dates: start: 20210325, end: 20210401
  7. METYRAPONE [Suspect]
     Active Substance: METYRAPONE
     Indication: Cushing^s syndrome
     Dates: start: 20210401

REACTIONS (5)
  - Liver injury [Recovered/Resolved]
  - Liver function test increased [Recovered/Resolved]
  - Hepatotoxicity [Recovered/Resolved]
  - Adrenal insufficiency [Recovered/Resolved]
  - Drug ineffective [Recovered/Resolved]

NARRATIVE: CASE EVENT DATE: 20200101
